FAERS Safety Report 7719172-6 (Version None)
Quarter: 2011Q3

REPORT INFORMATION
  Report Type: 
  Country: None (occurrence: None)
  Receive Date: 20110830
  Receipt Date: 20110825
  Transmission Date: 20111222
  Serious: Yes (Hospitalization)
  Sender: FDA-Public Use
  Company Number: TR-ABBOTT-11P-161-0849120-00

PATIENT
  Age: 76 Year
  Sex: Female
  Weight: 85 kg

DRUGS (2)
  1. TARKA [Suspect]
     Indication: HYPERTENSION
     Dosage: 240/4 MG
     Route: 047
     Dates: end: 20110820
  2. METFORMIN HCL [Concomitant]
     Indication: DIABETES MELLITUS
     Route: 048

REACTIONS (2)
  - ATRIAL FIBRILLATION [None]
  - ASTHENIA [None]
